FAERS Safety Report 12939422 (Version 1)
Quarter: 2016Q4

REPORT INFORMATION
  Report Type: Spontaneous
  Country: US (occurrence: US)
  Receive Date: 20161115
  Receipt Date: 20161115
  Transmission Date: 20170207
  Serious: No
  Sender: FDA-Public Use
  Company Number: US-SHIRE-US201616037

PATIENT
  Sex: Female
  Weight: 61.22 kg

DRUGS (6)
  1. LIALDA [Suspect]
     Active Substance: MESALAMINE
     Indication: COLITIS
  2. LIALDA [Suspect]
     Active Substance: MESALAMINE
     Indication: COLITIS ULCERATIVE
     Dosage: 1.2 G, 2X/DAY:BID; REPORTED AS (1) 1.2 G PO BID
     Route: 048
     Dates: start: 201606
  3. ARMOUR THYROID [Concomitant]
     Active Substance: THYROID, PORCINE
     Dosage: 30 ?G, 1X/DAY:QD; 30 MCQ PM DOSE
     Route: 048
     Dates: start: 2013
  4. CANASA [Concomitant]
     Active Substance: MESALAMINE
     Indication: COLITIS
     Dosage: 1000 MG, 1X/DAY:QD; HS RECTAL SUPPOSITORY
     Route: 054
     Dates: start: 2015
  5. UCERIS [Concomitant]
     Active Substance: BUDESONIDE
     Indication: COLITIS ULCERATIVE
     Dosage: UNK, UNKNOWN
     Route: 065
     Dates: start: 201607, end: 20161018
  6. ARMOUR THYROID [Concomitant]
     Active Substance: THYROID, PORCINE
     Indication: THYROID HORMONE REPLACEMENT THERAPY
     Dosage: 60 ?G, 1X/DAY:QD; 60 MCQ AM DOSE
     Route: 048
     Dates: start: 2013

REACTIONS (3)
  - Pruritus [Not Recovered/Not Resolved]
  - Inappropriate schedule of drug administration [Not Recovered/Not Resolved]
  - Rash [Not Recovered/Not Resolved]

NARRATIVE: CASE EVENT DATE: 201606
